FAERS Safety Report 5777182-2 (Version None)
Quarter: 2008Q2

REPORT INFORMATION
  Report Type: 
  Country: None (occurrence: None)
  Receive Date: 20080616
  Receipt Date: 20080604
  Transmission Date: 20081010
  Serious: Yes (Other)
  Sender: FDA-Public Use
  Company Number: 2008BI014655

PATIENT
  Age: 41 Year
  Sex: Male
  Weight: 87.0906 kg

DRUGS (1)
  1. TYSABRI [Suspect]
     Indication: MULTIPLE SCLEROSIS
     Dosage: 300 MG; QM; IV
     Route: 042
     Dates: start: 20080505

REACTIONS (3)
  - CONVULSION [None]
  - FEAR OF NEEDLES [None]
  - LOSS OF CONSCIOUSNESS [None]
